FAERS Safety Report 4800901-6 (Version None)
Quarter: 2005Q4

REPORT INFORMATION
  Report Type: 
  Country: None (occurrence: None)
  Receive Date: 20051011
  Receipt Date: 20050927
  Transmission Date: 20060501
  Serious: Yes (Life-Threatening)
  Sender: FDA-Public Use
  Company Number: 2005136202

PATIENT
  Age: 75 Year
  Sex: Male

DRUGS (3)
  1. VIAGRA [Suspect]
     Indication: ILL-DEFINED DISORDER
     Dosage: 50 MG, ORAL
     Route: 048
     Dates: start: 20050825
  2. BENAZEPRIL HCL [Concomitant]
  3. VASTAREL (TRIMETAZIDINE HYDROCHLORIDE) [Concomitant]

REACTIONS (5)
  - ATRIAL FIBRILLATION [None]
  - ISCHAEMIC STROKE [None]
  - MALAISE [None]
  - PALPITATIONS [None]
  - TACHYCARDIA [None]
